FAERS Safety Report 25678575 (Version 3)
Quarter: 2025Q3

REPORT INFORMATION
  Report Type: Report from Study
  Country: CA (occurrence: CA)
  Receive Date: 20250813
  Receipt Date: 20250917
  Transmission Date: 20251021
  Serious: Yes (Hospitalization)
  Sender: ABBVIE
  Company Number: CA-ABBVIE-6412185

PATIENT
  Sex: Female

DRUGS (1)
  1. QULIPTA [Suspect]
     Active Substance: ATOGEPANT
     Indication: Migraine
     Dosage: LAST ADMIN DATE-AUG 2025
     Route: 048
     Dates: start: 20240803

REACTIONS (2)
  - Pneumonia [Unknown]
  - Therapeutic product effect incomplete [Unknown]
